FAERS Safety Report 6037821-8 (Version None)
Quarter: 2009Q1

REPORT INFORMATION
  Report Type: 
  Country: None (occurrence: None)
  Receive Date: 20090113
  Receipt Date: 20081230
  Transmission Date: 20090719
  Serious: Yes (Other)
  Sender: FDA-Public Use
  Company Number: PHHY2008IN33571

PATIENT
  Age: 30 Year
  Sex: Female

DRUGS (3)
  1. VISUDYNE [Suspect]
     Indication: CHORIORETINOPATHY
     Dosage: 7 MG/M^2 DAILY IV
     Route: 042
  2. STEROIDS [Concomitant]
  3. IMMUNOSUPPRESSANTS [Concomitant]

REACTIONS (7)
  - ANXIETY [None]
  - DISCOMFORT [None]
  - HEADACHE [None]
  - MALAISE [None]
  - RASH [None]
  - TACHYCARDIA [None]
  - TACHYPNOEA [None]
